FAERS Safety Report 15270499 (Version 2)
Quarter: 2018Q4

REPORT INFORMATION
  Report Type: Report from Study
  Country: US (occurrence: US)
  Receive Date: 20180813
  Receipt Date: 20181025
  Transmission Date: 20190204
  Serious: Yes (Other)
  Sender: FDA-Public Use
  Company Number: US-ROCHE-2166781

PATIENT
  Sex: Female
  Weight: 131.66 kg

DRUGS (4)
  1. VALIUM [Suspect]
     Active Substance: DIAZEPAM
     Indication: MUSCLE SPASMS
     Dosage: ONGOING YES
     Route: 065
  2. OCREVUS [Suspect]
     Active Substance: OCRELIZUMAB
     Indication: MULTIPLE SCLEROSIS
     Dosage: ONGOING YES
     Route: 065
     Dates: start: 201708
  3. VALIUM [Suspect]
     Active Substance: DIAZEPAM
     Indication: TREMOR
  4. BENADRYL [Concomitant]
     Active Substance: DIPHENHYDRAMINE HYDROCHLORIDE

REACTIONS (17)
  - Depression [Unknown]
  - Pain [Not Recovered/Not Resolved]
  - Thyroid disorder [Unknown]
  - Fatigue [Unknown]
  - Gastrooesophageal reflux disease [Unknown]
  - Hemiparesis [Unknown]
  - Malaise [Unknown]
  - Arthralgia [Unknown]
  - Urinary incontinence [Unknown]
  - Pain of skin [Not Recovered/Not Resolved]
  - Pain [Unknown]
  - Pruritus [Unknown]
  - Fatigue [Not Recovered/Not Resolved]
  - Anal incontinence [Unknown]
  - Restless legs syndrome [Unknown]
  - Neuralgia [Unknown]
  - Memory impairment [Unknown]
